FAERS Safety Report 23974234 (Version 1)
Quarter: 2024Q2

REPORT INFORMATION
  Report Type: Report from Study
  Country: US (occurrence: US)
  Receive Date: 20240614
  Receipt Date: 20240614
  Transmission Date: 20240716
  Serious: Yes (Other)
  Sender: FDA-Public Use
  Company Number: US-ACADIA PHARMACEUTICALS INC.-ACA-2024-PIM-002556

PATIENT
  Sex: Male

DRUGS (10)
  1. NUPLAZID [Suspect]
     Active Substance: PIMAVANSERIN TARTRATE
     Indication: Parkinson^s disease psychosis
     Dosage: 34 MILLIGRAM, QD
     Route: 048
     Dates: start: 20240517
  2. RESTASIS [Concomitant]
     Active Substance: CYCLOSPORINE
  3. VALSARTAN [Concomitant]
     Active Substance: VALSARTAN
  4. CLONAZEPAM [Concomitant]
     Active Substance: CLONAZEPAM
  5. OMEPRAZOLE [Concomitant]
     Active Substance: DONEPEZIL HYDROCHLORIDE\OMEPRAZOLE\OMEPRAZOLE MAGNESIUM
  6. GABAPENTIN [Concomitant]
     Active Substance: GABAPENTIN
  7. FISH OIL [Concomitant]
     Active Substance: FISH OIL
  8. VITAMIN B [Concomitant]
     Active Substance: VITAMIN B
  9. VITAMIN D3 [Concomitant]
     Active Substance: CHOLECALCIFEROL
  10. MINERALS\VITAMINS [Concomitant]
     Active Substance: MINERALS\VITAMINS

REACTIONS (7)
  - Macular degeneration [Not Recovered/Not Resolved]
  - Abdominal discomfort [Not Recovered/Not Resolved]
  - Insomnia [Not Recovered/Not Resolved]
  - Gastrooesophageal reflux disease [Not Recovered/Not Resolved]
  - Pain [Not Recovered/Not Resolved]
  - Abdominal pain upper [Recovered/Resolved]
  - Hallucination [Not Recovered/Not Resolved]
